FAERS Safety Report 25223447 (Version 1)
Quarter: 2025Q2

REPORT INFORMATION
  Report Type: Spontaneous
  Country: US (occurrence: US)
  Receive Date: 20250422
  Receipt Date: 20250422
  Transmission Date: 20250716
  Serious: Yes (Hospitalization, Other)
  Sender: RISING PHARMACEUTICALS
  Company Number: US-RISINGPHARMA-US-2025RISLIT00186

PATIENT
  Age: 87 Year
  Sex: Male

DRUGS (1)
  1. METRONIDAZOLE [Suspect]
     Active Substance: METRONIDAZOLE
     Indication: Antibiotic therapy
     Route: 065

REACTIONS (7)
  - Toxic encephalopathy [Recovering/Resolving]
  - Vitamin B1 deficiency [Recovered/Resolved]
  - Dysarthria [Recovered/Resolved]
  - Confusional state [Recovering/Resolving]
  - Dysmetria [Recovered/Resolved]
  - Disturbance in attention [Recovering/Resolving]
  - Amnesia [Recovering/Resolving]
